FAERS Safety Report 13177407 (Version 1)
Quarter: 2017Q1

REPORT INFORMATION
  Report Type: Report from Study
  Country: US (occurrence: US)
  Receive Date: 20170201
  Receipt Date: 20170201
  Transmission Date: 20170428
  Serious: No
  Sender: FDA-Public Use
  Company Number: US-EXELIXIS-CABO-16006119

PATIENT
  Sex: Male

DRUGS (7)
  1. LYRICA [Concomitant]
     Active Substance: PREGABALIN
  2. LASIX [Concomitant]
     Active Substance: FUROSEMIDE
  3. TYLENOL [Concomitant]
     Active Substance: ACETAMINOPHEN
  4. COMETRIQ [Suspect]
     Active Substance: CABOZANTINIB S-MALATE
     Indication: RENAL CANCER
     Dosage: 60 MG, QD
     Route: 048
     Dates: start: 20160121, end: 201603
  5. COMETRIQ [Suspect]
     Active Substance: CABOZANTINIB S-MALATE
     Dosage: 40 MG, QD
     Route: 048
     Dates: start: 201604, end: 201604
  6. FLOMAX [Concomitant]
     Active Substance: TAMSULOSIN HYDROCHLORIDE
  7. CLARITIN [Concomitant]
     Active Substance: LORATADINE

REACTIONS (6)
  - Pleurisy [Unknown]
  - Blister [Not Recovered/Not Resolved]
  - Skin toxicity [Unknown]
  - Peripheral swelling [Unknown]
  - Off label use [Unknown]
  - Abasia [Unknown]
